FAERS Safety Report 25786094 (Version 3)
Quarter: 2025Q4

REPORT INFORMATION
  Report Type: Spontaneous
  Country: EU (occurrence: EU)
  Receive Date: 20250910
  Receipt Date: 20251023
  Transmission Date: 20260118
  Serious: No
  Sender: PFIZER
  Company Number: EU-PFIZER INC-PV202500102652

PATIENT
  Age: 1 Year
  Sex: Male
  Weight: 0.77 kg

DRUGS (4)
  1. GENOTROPIN [Suspect]
     Active Substance: SOMATROPIN
     Indication: Growth hormone deficiency
     Dosage: 1.4MG TOTAL WEEKLY DOSE WITHOUT DAY-OFF
     Route: 058
     Dates: start: 202506
  2. GENOTROPIN [Suspect]
     Active Substance: SOMATROPIN
     Indication: Hypopituitarism
  3. ACCU THYROX [Concomitant]
     Indication: Hypopituitarism
     Dosage: 1.2 MIU, 1X1
  4. HYDROCORTISONE ACETATE [Concomitant]
     Active Substance: HYDROCORTISONE ACETATE
     Indication: Hypopituitarism
     Dosage: 0.4 MIU, 1X1

REACTIONS (1)
  - Device leakage [Unknown]

NARRATIVE: CASE EVENT DATE: 20250601
